FAERS Safety Report 5613389-2 (Version None)
Quarter: 2008Q1

REPORT INFORMATION
  Report Type: 
  Country: None (occurrence: None)
  Receive Date: 20080129
  Receipt Date: 20080117
  Transmission Date: 20080703
  Serious: Yes (Death, Life-Threatening, Hospitalization, Disabling)
  Sender: FDA-Public Use
  Company Number: 200712AGG00767

PATIENT
  Age: 70 Year
  Sex: Male

DRUGS (8)
  1. AGGRASTAT [Suspect]
     Indication: ANGINA UNSTABLE
     Dosage: (0.4 MCG/KG, 0.05 MCG/KG)
     Route: 040
     Dates: start: 20071002, end: 20071002
  2. AGGRASTAT [Suspect]
     Indication: ANGINA UNSTABLE
     Dosage: (0.4 MCG/KG, 0.05 MCG/KG)
     Route: 040
     Dates: start: 20071002, end: 20071004
  3. CLOPIDOGREL BISULFATE [Concomitant]
  4. ASPIRIN [Concomitant]
  5. INSULIN [Concomitant]
  6. HEPARIN LMW [Concomitant]
  7. BURINEX [Concomitant]
  8. ZOCOR [Concomitant]

REACTIONS (5)
  - ANOXIC ENCEPHALOPATHY [None]
  - CEREBRAL ISCHAEMIA [None]
  - DISEASE PROGRESSION [None]
  - HAEMOPTYSIS [None]
  - RENAL FAILURE [None]
